FAERS Safety Report 13168354 (Version 4)
Quarter: 2018Q2

REPORT INFORMATION
  Report Type: Spontaneous
  Country: GB (occurrence: GB)
  Receive Date: 20170131
  Receipt Date: 20180618
  Transmission Date: 20180711
  Serious: Yes (Hospitalization, Other)
  Sender: FDA-Public Use
  Company Number: GB-SA-2017SA014222

PATIENT
  Age: 69 Year
  Sex: Male

DRUGS (1)
  1. CLOPIDOGREL BISULFATE. [Suspect]
     Active Substance: CLOPIDOGREL BISULFATE
     Indication: CEREBROVASCULAR ACCIDENT
     Dosage: UNK UNK,UNK
     Route: 065

REACTIONS (14)
  - Pyrexia [Recovering/Resolving]
  - Haemoglobin decreased [Recovering/Resolving]
  - Intestinal ischaemia [Recovering/Resolving]
  - Sepsis [Unknown]
  - Gastrointestinal necrosis [Recovering/Resolving]
  - Femoral artery aneurysm [Recovering/Resolving]
  - Rectal perforation [Recovering/Resolving]
  - Retroperitoneal haematoma [Recovering/Resolving]
  - Abdominal pain [Recovering/Resolving]
  - Hypotension [Recovering/Resolving]
  - Tachycardia [Recovering/Resolving]
  - Peritonitis [Recovering/Resolving]
  - Computerised tomogram abnormal [Recovering/Resolving]
  - C-reactive protein increased [Recovering/Resolving]
